FAERS Safety Report 25848166 (Version 2)
Quarter: 2025Q4

REPORT INFORMATION
  Report Type: Report from Study
  Country: US (occurrence: US)
  Receive Date: 20250925
  Receipt Date: 20251019
  Transmission Date: 20260118
  Serious: Yes (Hospitalization, Other)
  Sender: NOVARTIS
  Company Number: US-002147023-NVSC2025US148147

PATIENT
  Sex: Female

DRUGS (92)
  1. KESIMPTA [Suspect]
     Active Substance: OFATUMUMAB
     Indication: Multiple sclerosis
     Dosage: UNK, (20/0.4 MG/ML) QMO
     Route: 058
     Dates: start: 20250403, end: 202506
  2. KESIMPTA [Suspect]
     Active Substance: OFATUMUMAB
     Dosage: 1 DOSAGE FORM, QMO
     Route: 065
  3. KESIMPTA [Suspect]
     Active Substance: OFATUMUMAB
     Dosage: UNK, QMO
     Route: 058
     Dates: start: 202504, end: 20250604
  4. MAYZENT [Suspect]
     Active Substance: SIPONIMOD
     Indication: Multiple sclerosis
     Dosage: 2 MG, QD
     Route: 048
     Dates: start: 201908, end: 20190920
  5. OCREVUS [Concomitant]
     Active Substance: OCRELIZUMAB
     Indication: Product used for unknown indication
     Dosage: UNK
     Route: 065
  6. MAVENCLAD [Concomitant]
     Active Substance: CLADRIBINE
     Indication: Product used for unknown indication
     Dosage: UNK
     Route: 065
     Dates: start: 20201109
  7. MAVENCLAD [Concomitant]
     Active Substance: CLADRIBINE
     Dosage: 10 MG, (5 TABLETS PACK)
     Route: 065
  8. MAVENCLAD [Concomitant]
     Active Substance: CLADRIBINE
     Dosage: 10 MG (10 TABLET PACK) TABLET(1.0 TABLET)
     Route: 065
  9. MAVENCLAD [Concomitant]
     Active Substance: CLADRIBINE
     Dosage: UNK (SECOND YEAR)
     Route: 065
  10. AMITIZA [Concomitant]
     Active Substance: LUBIPROSTONE
     Indication: Product used for unknown indication
     Dosage: 1 DOSAGE FORM 24 MCG,  BID1 CAPSULE
     Route: 065
  11. AMITIZA [Concomitant]
     Active Substance: LUBIPROSTONE
     Dosage: 0.024 MG, BID (CAPSULE)
     Route: 048
     Dates: start: 20201109
  12. DALFAMPRIDINE [Concomitant]
     Active Substance: DALFAMPRIDINE
     Indication: Product used for unknown indication
     Dosage: 10 MG, PO, Q12H BID (EXTENDED RELEASE12 HR (DALFAMPRIDINE) (1.0 TABLET))
     Route: 048
  13. DESVENLAFAXINE SUCCINATE [Concomitant]
     Active Substance: DESVENLAFAXINE SUCCINATE
     Indication: Product used for unknown indication
     Dosage: 50 MG, QD EXTENDED RELEASE 24 HR (TABLET) IN MORNING
     Route: 048
  14. FLEXERIL [Concomitant]
     Active Substance: CYCLOBENZAPRINE HYDROCHLORIDE
     Indication: Muscle spasms
     Dosage: 1 DOSAGE FORM, QHS (10 MG)
     Route: 048
  15. FLOMAX [Concomitant]
     Active Substance: TAMSULOSIN HYDROCHLORIDE
     Indication: Product used for unknown indication
     Dosage: 0.4 MG, OTHER (1.0 CAPSULE) 0.4 MG 1 Q AM)
     Route: 048
  16. FLOMAX [Concomitant]
     Active Substance: TAMSULOSIN HYDROCHLORIDE
     Dosage: 0.4 MG, QD (1 CAPSULE)
     Route: 048
  17. HYDROXYCHLOROQUINE [Concomitant]
     Active Substance: HYDROXYCHLOROQUINE
     Indication: Product used for unknown indication
     Dosage: 200 MG, OTHER (1.0 TABLET) TAKE 1 QD AY X 15 DAYS THEN QW)
     Route: 048
  18. MARINOL [Concomitant]
     Active Substance: DRONABINOL
     Indication: Product used for unknown indication
     Dosage: 1 DOSAGE FORM, TID
     Route: 048
  19. MECLIZINE [Concomitant]
     Active Substance: MECLIZINE HYDROCHLORIDE
     Indication: Dizziness
     Dosage: 25 MG, Q8H (1 TABLET, PNR)
     Route: 048
  20. MECLIZINE [Concomitant]
     Active Substance: MECLIZINE HYDROCHLORIDE
     Dosage: 25 MG, TID (TABLETS)
     Route: 048
  21. MECLIZINE [Concomitant]
     Active Substance: MECLIZINE HYDROCHLORIDE
     Dosage: UNK, Q8H
     Route: 048
     Dates: start: 20201109
  22. METHENAMINE HIPPURATE [Concomitant]
     Active Substance: METHENAMINE HIPPURATE
     Indication: Product used for unknown indication
     Dosage: 1 G, BID (1 TABLET)
     Route: 065
  23. REGLAN [Concomitant]
     Active Substance: METOCLOPRAMIDE HYDROCHLORIDE
     Indication: Product used for unknown indication
     Dosage: 10 MG, BID
     Route: 048
     Dates: start: 20201109
  24. REGLAN [Concomitant]
     Active Substance: METOCLOPRAMIDE HYDROCHLORIDE
     Dosage: 10 MG, BID (1.0 TABLET)
     Route: 048
  25. REGLAN [Concomitant]
     Active Substance: METOCLOPRAMIDE HYDROCHLORIDE
     Dosage: 5 MG, BID
     Route: 048
  26. REGLAN [Concomitant]
     Active Substance: METOCLOPRAMIDE HYDROCHLORIDE
     Dosage: 10 MG, QID
     Route: 048
  27. MOVANTIK [Concomitant]
     Active Substance: NALOXEGOL OXALATE
     Indication: Product used for unknown indication
     Dosage: 25 MG, OTHER  (1.0 TABLET) 25 MG 1 HR AC OR 2 HRS PC) 1 TAB(S) ONCE A DAY (IN THE MORNING)
     Route: 048
  28. RESTORIL [Concomitant]
     Active Substance: TEMAZEPAM
     Indication: Product used for unknown indication
     Dosage: 2 DOSAGE FORM, QHS
     Route: 048
  29. RESTORIL [Concomitant]
     Active Substance: TEMAZEPAM
     Dosage: 2 DOSAGE FORM, QHS
     Route: 048
  30. TOPIRAMATE [Concomitant]
     Active Substance: TOPIRAMATE
     Indication: Product used for unknown indication
     Dosage: 200 MG, QD, (TAKE 1 CAPSULE) MG TAKE 1 CAPSULE BY MOUTH EVERY DAY
     Route: 048
  31. TOPIRAMATE [Concomitant]
     Active Substance: TOPIRAMATE
     Dosage: 100 MG, QD
     Route: 048
     Dates: start: 20201109
  32. TOPIRAMATE [Concomitant]
     Active Substance: TOPIRAMATE
     Dosage: 50 MG, QD
     Route: 048
  33. TROKENDI XR [Concomitant]
     Active Substance: TOPIRAMATE
     Indication: Product used for unknown indication
     Dosage: 50 MG, QD (1.0 CAPSULE)
     Route: 048
  34. TROKENDI XR [Concomitant]
     Active Substance: TOPIRAMATE
     Dosage: 200 MG, QD (1.0 CAPSULE) CAPSULE EXTENDED RELEASE () ( CAPSULE) 200 MG TAKE 1 CAPSULE BY MOUTH EVERY
     Route: 048
  35. TROKENDI XR [Concomitant]
     Active Substance: TOPIRAMATE
     Dosage: 200 MG, QD (1.0 CAPSULE EXTENDED RELEASE AND TAKE 200 MG WITH 50 MG CAPSULE FOR TOTAL DOSE
     Route: 048
  36. TROKENDI XR [Concomitant]
     Active Substance: TOPIRAMATE
     Dosage: 100 MG, QD
     Route: 048
  37. VALACYCLOVIR [Concomitant]
     Active Substance: VALACYCLOVIR HYDROCHLORIDE
     Indication: Product used for unknown indication
     Dosage: 500 MG, QD, (TABLET)
     Route: 048
  38. VALACYCLOVIR [Concomitant]
     Active Substance: VALACYCLOVIR HYDROCHLORIDE
     Dosage: 1 DOSAGE FORM, QD
     Route: 048
  39. VIMPAT [Concomitant]
     Active Substance: LACOSAMIDE
     Indication: Product used for unknown indication
     Dosage: 100 MG, BID (1.0 TABLET)
     Route: 048
  40. VIMPAT [Concomitant]
     Active Substance: LACOSAMIDE
     Dosage: 150 MG, BID
     Route: 048
  41. VIMPAT [Concomitant]
     Active Substance: LACOSAMIDE
     Dosage: 50 MG, BID
     Route: 048
  42. VIMPAT [Concomitant]
     Active Substance: LACOSAMIDE
     Dosage: 50 MG, BID
     Route: 048
  43. VIMPAT [Concomitant]
     Active Substance: LACOSAMIDE
     Dosage: 100 MG, BID
     Route: 048
  44. ZOFRAN [Concomitant]
     Active Substance: ONDANSETRON HYDROCHLORIDE
     Indication: Product used for unknown indication
     Dosage: 8 MG, Q8H (1.0 TABLET) PRN
     Route: 048
  45. ZONISAMIDE [Concomitant]
     Active Substance: ZONISAMIDE
     Indication: Product used for unknown indication
     Dosage: 100 MG, QD, (1 CAPSULE BY MOUTH EVERY DAY IN THE MORNING)
     Route: 048
     Dates: start: 20201109
  46. ZONISAMIDE [Concomitant]
     Active Substance: ZONISAMIDE
     Dosage: 100 MG, QD, (1 CAPSULE EVERY DAY AT BEDTIME)
     Route: 048
  47. ZONISAMIDE [Concomitant]
     Active Substance: ZONISAMIDE
     Dosage: 100 MG, QD, (1 CAPSULE BY MOUTH EVERY DAY IN THE MORNING)
     Route: 048
  48. ZONISAMIDE [Concomitant]
     Active Substance: ZONISAMIDE
     Dosage: 200 MG, QD TABLET
     Route: 048
  49. CODEINE [Concomitant]
     Active Substance: CODEINE
     Indication: Pruritus
     Dosage: UNK
     Route: 065
  50. LACOSAMIDE [Concomitant]
     Active Substance: LACOSAMIDE
     Indication: Rash
     Dosage: 50 MG, BID (0.5 TAB = 50 MG)
     Route: 048
  51. LEVOFLOXACIN [Concomitant]
     Active Substance: LEVOFLOXACIN
     Indication: Urticaria
     Dosage: UNK
     Route: 065
  52. VANCOMYCIN [Concomitant]
     Active Substance: VANCOMYCIN
     Indication: Prophylaxis
     Dosage: 125 MG, BID (1 CAPSULES)
     Route: 048
  53. ASCORBIC ACID [Concomitant]
     Active Substance: ASCORBIC ACID
     Indication: Product used for unknown indication
     Dosage: 500 MG, QD (TABLET) OTC
     Route: 048
  54. CHOLECALCIFEROL [Concomitant]
     Active Substance: CHOLECALCIFEROL
     Indication: Product used for unknown indication
     Dosage: 1250 MCG (50000 INTL. UNITS, CAPSULE), QW
     Route: 048
  55. DICYCLOMINE [Concomitant]
     Active Substance: DICYCLOMINE HYDROCHLORIDE
     Indication: Abdominal discomfort
     Dosage: 20 MG, OTHER, TABLET (4 TIMES A DAY AS NEEDED),
     Route: 048
  56. FUROSEMIDE [Concomitant]
     Active Substance: FUROSEMIDE
     Indication: Swelling
     Dosage: 40 MG, QD (TABLET AS NEEDED AND TAKE WITH POTASSIUM CHLORIDE)
     Route: 048
  57. LUBIPROSTONE [Concomitant]
     Active Substance: LUBIPROSTONE
     Indication: Product used for unknown indication
     Dosage: 24 MCG, BID (CAPSULE)
     Route: 048
  58. METHENAMINE [Concomitant]
     Active Substance: METHENAMINE
     Indication: Product used for unknown indication
     Dosage: 1 G, BID (TABLETS)
     Route: 048
  59. POTASSIUM CHLORIDE [Concomitant]
     Active Substance: POTASSIUM CHLORIDE
     Indication: Fluid retention
     Dosage: 20 MEQ, QD (EQV-K-TAB EXTENDED RELEASE) WITH FUROSEMIDE
     Route: 048
  60. MOTEGRITY [Concomitant]
     Active Substance: PRUCALOPRIDE SUCCINATE
     Indication: Product used for unknown indication
     Dosage: 2 MG, QD (TABLET)
     Route: 048
  61. TEMAZEPAM [Concomitant]
     Active Substance: TEMAZEPAM
     Indication: Product used for unknown indication
     Dosage: 15 MG, BID (2 CAPSULES AT BED TIME)
     Route: 048
  62. TEMAZEPAM [Concomitant]
     Active Substance: TEMAZEPAM
     Dosage: 30 MG, QD CAPSULE
     Route: 048
     Dates: start: 20201109
  63. D-mannose cranberry extra [Concomitant]
     Indication: Product used for unknown indication
     Dosage: 4 DOSAGE FORM, QD, OTC
     Route: 048
  64. ACTHAR [Concomitant]
     Active Substance: CORTICOTROPIN
     Indication: Product used for unknown indication
     Dosage: UNK
     Route: 065
  65. VESICARE [Concomitant]
     Active Substance: SOLIFENACIN SUCCINATE
     Indication: Product used for unknown indication
     Dosage: 5 MG, QD (ONE TAB Q AM)
     Route: 048
  66. VESICARE [Concomitant]
     Active Substance: SOLIFENACIN SUCCINATE
     Dosage: 10 MG, QD
     Route: 048
  67. TORADOL [Concomitant]
     Active Substance: KETOROLAC TROMETHAMINE
     Indication: Migraine
     Dosage: 3 ML, (1.0 MILLILITER) 3 ML 25-GAUGE X 1
     Route: 065
  68. TORADOL [Concomitant]
     Active Substance: KETOROLAC TROMETHAMINE
     Dosage: (1.0 MILLILITER) 30 MG/ML (1 ML) GIVE 1ML Q 3DAYS PRN
     Route: 030
  69. ADDERALL [Concomitant]
     Active Substance: AMPHETAMINE ASPARTATE\AMPHETAMINE SULFATE\DEXTROAMPHETAMINE SACCHARATE\DEXTROAMPHETAMINE SULFATE
     Indication: Product used for unknown indication
     Dosage: 10 MG, BID (1.0 TABLET)
     Route: 065
  70. AMPYRA [Concomitant]
     Active Substance: DALFAMPRIDINE
     Indication: Product used for unknown indication
     Dosage: 10 MG, BID (EXTENDED-RELEASE TABLET )
     Route: 065
     Dates: start: 20201109
  71. SCOPOLAMINE [Concomitant]
     Active Substance: SCOPOLAMINE
     Indication: Product used for unknown indication
     Dosage: 1 MG(PATCH), Q72H TRANSDERMAL PATCH 3 DAY (SCOPOLAMINE) (1.0 PATCH) 1 MG OVER 3 DAYS 1 PATCH EVERY 7
     Route: 062
  72. DRONABINOL [Concomitant]
     Active Substance: DRONABINOL
     Indication: Product used for unknown indication
     Dosage: 5 MG, PRN (TABLET)
     Route: 065
  73. Balgifen [Concomitant]
     Indication: Product used for unknown indication
     Dosage: 10 MG, TID
     Route: 048
     Dates: start: 20201109
  74. Balgifen [Concomitant]
     Dosage: 10 MG, BID TAKE 1 TABLET BY MOUTH TWICE A DAY
     Route: 048
  75. Balgifen [Concomitant]
     Dosage: 20 MG TID TAKE 1 TABLET BY MOUTH THREE TIMES A DAY
     Route: 048
     Dates: start: 20201109
  76. EMGALITY [Concomitant]
     Active Substance: GALCANEZUMAB-GNLM
     Indication: Migraine
     Dosage: 120 MILLIGRAM PER MILLILITREPEN SUBCUTANEOUS PEN INJECTOR (GALCANEZUMAB-GN ... ) (1.0 MILLILITER) 12
     Route: 050
  77. PREDNISONE [Concomitant]
     Active Substance: PREDNISONE
     Indication: Product used for unknown indication
     Dosage: 20 MG, QD TAKE 3 PO QD X7 DAYS
     Route: 048
  78. PREDNISONE [Concomitant]
     Active Substance: PREDNISONE
     Dosage: 20 MG THEN 2 PO QDX 7 DAYS  QD
     Route: 048
  79. PREDNISONE [Concomitant]
     Active Substance: PREDNISONE
     Dosage: 20 MG, QD 1 PO QDX7 DAYS
     Route: 048
  80. PREDNISONE [Concomitant]
     Active Substance: PREDNISONE
     Dosage: 20 MG, QD 1 PO QOD X 3DAYS
     Route: 048
  81. PREDNISONE [Concomitant]
     Active Substance: PREDNISONE
     Dosage: 20 MG, QD 20 MG 3 PO Q DAY X 2
     Route: 048
  82. PREDNISONE [Concomitant]
     Active Substance: PREDNISONE
     Dosage: 20 MG 2 PO Q DAY X 2 DAYS QD
     Route: 048
  83. PREDNISONE [Concomitant]
     Active Substance: PREDNISONE
     Dosage: 20 MG, QD  1 PO Q DAY X 2
     Route: 048
  84. VITAMIN D3 [Concomitant]
     Active Substance: CHOLECALCIFEROL
     Indication: Product used for unknown indication
     Dosage: 1 DOSAGE FORM 5000 INTL UNITS), 1 TAB(S) ONCE A DAY
     Route: 065
  85. AUGMENTIN [Concomitant]
     Active Substance: AMOXICILLIN\CLAVULANATE POTASSIUM
     Indication: Product used for unknown indication
     Dosage: 1 DOSAGE FORM BID (875 MG-125 MG), 1 PILL TWICE A DAY FOR 10 DAYS
     Route: 065
  86. NAPROXEN [Concomitant]
     Active Substance: NAPROXEN
     Indication: Product used for unknown indication
     Dosage: 500 MG, BID 1 PILL BY MOUTH TWICE A DAY FOR 7 DAYS
     Route: 048
  87. TAMSULOSIN [Concomitant]
     Active Substance: TAMSULOSIN
     Indication: Product used for unknown indication
     Dosage: 0.4 MG, QD ( CAPSULE) 0.4 MG TAKE 1 CAPSULE BY MOUTH EVERY DAY IN THE MORNING
     Route: 048
  88. PYRIDIUM [Concomitant]
     Active Substance: PHENAZOPYRIDINE
     Indication: Product used for unknown indication
     Dosage: 100 MG, PRN TID TABLET
     Route: 065
  89. OMNIPAQUE [Concomitant]
     Active Substance: IOHEXOL
     Indication: Product used for unknown indication
     Dosage: 100 ML AT 300
     Route: 065
  90. KETOROLAC [Concomitant]
     Active Substance: KETOROLAC TROMETHAMINE
     Indication: Migraine
     Dosage: 1 ML, PRN 60 MG/2 ML GIVE EVERY 3 DAYS
     Route: 030
  91. PRISTIQ EXTENDED-RELEASE [Concomitant]
     Active Substance: DESVENLAFAXINE SUCCINATE
     Indication: Product used for unknown indication
     Dosage: 50 MG, QD
     Route: 065
  92. PROVIGIL [Concomitant]
     Active Substance: MODAFINIL
     Indication: Fatigue
     Dosage: 200 MG, QD ((1.0 TABLET) 200 MG 1 TAB DAILY)
     Route: 048

REACTIONS (69)
  - Pneumonia bacterial [Recovered/Resolved]
  - Multiple sclerosis relapse [Unknown]
  - Paraesthesia [Not Recovered/Not Resolved]
  - Dysarthria [Unknown]
  - Vision blurred [Recovered/Resolved with Sequelae]
  - Gait inability [Unknown]
  - Muscle spasticity [Unknown]
  - Cellulitis [Unknown]
  - Optic neuritis [Recovered/Resolved with Sequelae]
  - Pain [Unknown]
  - Hypoaesthesia [Unknown]
  - Pneumothorax [Unknown]
  - Paralysis [Unknown]
  - Eye pain [Not Recovered/Not Resolved]
  - Ophthalmoplegia [Unknown]
  - Nausea [Unknown]
  - Ageusia [Unknown]
  - Noninfective encephalitis [Unknown]
  - Impaired gastric emptying [Unknown]
  - Superior mesenteric artery syndrome [Not Recovered/Not Resolved]
  - Cataract subcapsular [Unknown]
  - Hemiparesis [Unknown]
  - Congenital diaphragmatic hernia [Unknown]
  - Secondary progressive multiple sclerosis [Unknown]
  - Blindness [Recovered/Resolved with Sequelae]
  - Pneumonia [Recovering/Resolving]
  - Urinary retention [Unknown]
  - Neurogenic bladder [Not Recovered/Not Resolved]
  - Depression [Unknown]
  - Blood immunoglobulin G decreased [Unknown]
  - Upper respiratory tract infection [Unknown]
  - Pyrexia [Unknown]
  - Chills [Unknown]
  - Vomiting [Unknown]
  - Diarrhoea [Unknown]
  - Headache [Unknown]
  - Pulmonary pain [Unknown]
  - Asthenia [Not Recovered/Not Resolved]
  - Magnetic resonance imaging abnormal [Unknown]
  - Autonomic nervous system imbalance [Unknown]
  - Bronchitis [Unknown]
  - Pleurisy [Unknown]
  - Diplopia [Unknown]
  - Dysphagia [Unknown]
  - Hernia [Unknown]
  - Localised infection [Not Recovered/Not Resolved]
  - Neuralgia [Unknown]
  - Constipation [Unknown]
  - Fatigue [Unknown]
  - Dyspnoea [Unknown]
  - Weight decreased [Unknown]
  - Dry eye [Unknown]
  - Vitreous floaters [Unknown]
  - Dry mouth [Unknown]
  - Tinnitus [Unknown]
  - Temperature intolerance [Unknown]
  - Musculoskeletal stiffness [Unknown]
  - Myalgia [Unknown]
  - Anxiety [Unknown]
  - Seasonal allergy [Unknown]
  - Coordination abnormal [Unknown]
  - Illness [Unknown]
  - Visual impairment [Unknown]
  - Vertigo [Unknown]
  - Urinary hesitation [Unknown]
  - Irritable bowel syndrome [Unknown]
  - Cough [Unknown]
  - Sneezing [Unknown]
  - Rhinorrhoea [Unknown]

NARRATIVE: CASE EVENT DATE: 20200101
